FAERS Safety Report 23997693 (Version 1)
Quarter: 2024Q2

REPORT INFORMATION
  Report Type: Report from Study
  Country: BR (occurrence: BR)
  Receive Date: 20240621
  Receipt Date: 20240621
  Transmission Date: 20240716
  Serious: Yes (Death, Life-Threatening, Hospitalization, Other)
  Sender: FDA-Public Use
  Company Number: BR-AstraZeneca-2024A088944

PATIENT
  Age: 5 Month
  Sex: Male
  Weight: 2.2 kg

DRUGS (3)
  1. SYNAGIS [Suspect]
     Active Substance: PALIVIZUMAB
     Indication: Antiviral prophylaxis
     Dosage: UNKNOWN
     Route: 030
     Dates: start: 20240222
  2. FERROUS SULFATE [Concomitant]
     Active Substance: FERROUS SULFATE
     Indication: Anaemia
     Dosage: DAILY
  3. BECLOMETHASONE DIPROPIONATE [Concomitant]
     Active Substance: BECLOMETHASONE DIPROPIONATE
     Indication: Bronchial dysplasia
     Dosage: 3ML OF SALINE SOLUTION DILUTED IN HALF A BOTTLE OFCLENIL

REACTIONS (5)
  - Septic shock [Fatal]
  - Cardio-respiratory arrest [Fatal]
  - Liver disorder [Not Recovered/Not Resolved]
  - Infection [Not Recovered/Not Resolved]
  - Pneumonia [Not Recovered/Not Resolved]

NARRATIVE: CASE EVENT DATE: 20240301
